FAERS Safety Report 21959174 (Version 3)
Quarter: 2023Q1

REPORT INFORMATION
  Report Type: Spontaneous
  Country: US (occurrence: US)
  Receive Date: 20230206
  Receipt Date: 20230214
  Transmission Date: 20230418
  Serious: Yes (Death, Hospitalization)
  Sender: FDA-Public Use
  Company Number: US-AMNEAL PHARMACEUTICALS-2023-AMRX-00325

PATIENT
  Age: 80 Year
  Sex: Male

DRUGS (2)
  1. RYTARY [Suspect]
     Active Substance: CARBIDOPA\LEVODOPA
     Indication: Product used for unknown indication
     Dosage: 3 CAPSULES, (23.75-95 MG ) 3 /DAY
     Route: 048
  2. RYTARY [Suspect]
     Active Substance: CARBIDOPA\LEVODOPA
     Dosage: 2 CAPSULES, (36.25-145 MG ) 3 /DAY
     Route: 048
     Dates: start: 20221201

REACTIONS (2)
  - COVID-19 [Fatal]
  - Adverse event [Unknown]

NARRATIVE: CASE EVENT DATE: 20230125
